FAERS Safety Report 20471478 (Version 1)
Quarter: 2022Q1

REPORT INFORMATION
  Report Type: Spontaneous
  Country: US (occurrence: US)
  Receive Date: 20220214
  Receipt Date: 20220214
  Transmission Date: 20220423
  Serious: No
  Sender: FDA-Public Use
  Company Number: US-SA-SAC20220208001069

PATIENT
  Sex: Female

DRUGS (4)
  1. KEVZARA [Suspect]
     Active Substance: SARILUMAB
     Indication: Migraine
     Dosage: 200MG/1.14ML
     Route: 058
  2. KEVZARA [Suspect]
     Active Substance: SARILUMAB
     Indication: Polyarthritis
  3. KEVZARA [Suspect]
     Active Substance: SARILUMAB
     Indication: Asthma
  4. KEVZARA [Suspect]
     Active Substance: SARILUMAB
     Indication: Rheumatoid arthritis

REACTIONS (5)
  - Hypersomnia [Unknown]
  - Fatigue [Unknown]
  - COVID-19 [Unknown]
  - Product prescribing issue [Unknown]
  - Product use in unapproved indication [Unknown]
